FAERS Safety Report 17292657 (Version 1)
Quarter: 2020Q1

REPORT INFORMATION
  Report Type: Spontaneous
  Country: US (occurrence: US)
  Receive Date: 20200102
  Receipt Date: 20200102
  Transmission Date: 20200409
  Serious: No
  Sender: FDA-Public Use
  Company Number: None

PATIENT
  Age: 60 Year
  Sex: Male
  Weight: 91.63 kg

DRUGS (2)
  1. TALTZ [Suspect]
     Active Substance: IXEKIZUMAB
     Indication: PSORIASIS
     Dosage: INJECT 8MG (1 PEN) SUBCUTANEOUSLY AT WEEK 12 THEN  EVERY 4 WEEKS  AS DIRECTED
     Route: 058
     Dates: start: 201910
  2. TALTZ [Suspect]
     Active Substance: IXEKIZUMAB
     Indication: PSORIATIC ARTHROPATHY
     Dosage: INJECT 8MG (1 PEN) SUBCUTANEOUSLY AT WEEK 12 THEN  EVERY 4 WEEKS  AS DIRECTED
     Route: 058
     Dates: start: 201910

REACTIONS (1)
  - Thrombosis [None]
